FAERS Safety Report 10096784 (Version 2)
Quarter: 2014Q2

REPORT INFORMATION
  Report Type: Spontaneous
  Country: US (occurrence: US)
  Receive Date: 20140422
  Receipt Date: 20140506
  Transmission Date: 20141212
  Serious: Yes (Life-Threatening)
  Sender: FDA-Public Use
  Company Number: CHPA2014US005574

PATIENT
  Age: 85 Year
  Sex: Female

DRUGS (4)
  1. PREVACID 24HR 15MG [Suspect]
     Indication: HIATUS HERNIA
     Dosage: 15 MG, BID
  2. PREVACID 24HR 15MG [Suspect]
     Indication: OFF LABEL USE
  3. PREVACID 24HR 15MG [Suspect]
     Indication: RHEUMATOID ARTHRITIS
  4. PREVACID 24HR 15MG [Suspect]
     Indication: OFF LABEL USE

REACTIONS (5)
  - Feeling abnormal [Recovered/Resolved]
  - Walking aid user [Unknown]
  - Drug ineffective for unapproved indication [Unknown]
  - Incorrect drug administration duration [Unknown]
  - Incorrect dose administered [Unknown]
